FAERS Safety Report 18007722 (Version 1)
Quarter: 2020Q3

REPORT INFORMATION
  Report Type: Spontaneous
  Country: GB (occurrence: GB)
  Receive Date: 20200710
  Receipt Date: 20200710
  Transmission Date: 20201103
  Serious: Yes (Congenital Anomaly)
  Sender: FDA-Public Use
  Company Number: GB-OTSUKA-2020_016425

PATIENT

DRUGS (1)
  1. ARIPIPRAZOLE. [Suspect]
     Active Substance: ARIPIPRAZOLE
     Indication: SCHIZOPHRENIA
     Dosage: 10 MG, UNK
     Route: 064

REACTIONS (3)
  - Small for dates baby [Recovered/Resolved]
  - Ventricular septal defect [Unknown]
  - Foetal exposure during pregnancy [Unknown]
